FAERS Safety Report 7800022-4 (Version None)
Quarter: 2011Q4

REPORT INFORMATION
  Report Type: 
  Country: None (occurrence: None)
  Receive Date: 20111006
  Receipt Date: 20110927
  Transmission Date: 20120403
  Serious: Yes (Hospitalization)
  Sender: FDA-Public Use
  Company Number: FR-MPIJNJ-2011-02710

PATIENT

DRUGS (7)
  1. LENALIDOMIDE [Suspect]
     Indication: MULTIPLE MYELOMA
     Dosage: 25 MG, UNK
     Route: 048
     Dates: start: 20110412
  2. DEXAMETHASONE [Concomitant]
     Indication: PROSTATIC ADENOMA
     Route: 065
  3. LOVENOX [Concomitant]
     Indication: THROMBOSIS PROPHYLAXIS
     Dosage: 0.4 ML, UNK
     Route: 058
     Dates: start: 20110501
  4. VELCADE [Suspect]
     Indication: MULTIPLE MYELOMA
     Dosage: 1.3 MG/M2, CYCLIC
     Route: 042
     Dates: start: 20110412, end: 20110612
  5. VELCADE [Suspect]
     Dosage: 1 MG/M2, UNK
     Route: 042
  6. DOXAZOSIN MESYLATE [Suspect]
     Indication: MULTIPLE MYELOMA
     Route: 065
  7. ZELITREX                           /01269701/ [Concomitant]
     Indication: PROPHYLAXIS
     Dosage: 500 MG, UNK
     Route: 048
     Dates: start: 20110412

REACTIONS (2)
  - ORTHOSTATIC HYPOTENSION [None]
  - FALL [None]
